FAERS Safety Report 8770489 (Version 2)
Quarter: 2012Q4

REPORT INFORMATION
  Report Type: Report from Study
  Country: BE (occurrence: BE)
  Receive Date: 20120906
  Receipt Date: 20120906
  Transmission Date: 20130627
  Serious: Yes (Hospitalization)
  Sender: FDA-Public Use
  Company Number: BE-009507513-1207BEL006850

PATIENT

DRUGS (35)
  1. NEOSTIGMINE [Suspect]
     Indication: NEUROMUSCULAR BLOCKADE REVERSAL
     Dosage: UNK UNK, Once
     Route: 042
     Dates: start: 20120705, end: 20120705
  2. BLINDED PLACEBO [Suspect]
     Indication: NEUROMUSCULAR BLOCKADE REVERSAL
     Dosage: UNK UNK, Once
     Route: 042
     Dates: start: 20120705, end: 20120705
  3. BLINDED POST TRIAL THERAPY [Suspect]
     Indication: NEUROMUSCULAR BLOCKADE REVERSAL
     Dosage: UNK UNK, Once
     Route: 042
     Dates: start: 20120705, end: 20120705
  4. BLINDED PRE TRIAL THERAPY [Suspect]
     Indication: NEUROMUSCULAR BLOCKADE REVERSAL
     Dosage: UNK UNK, Once
     Route: 042
     Dates: start: 20120705, end: 20120705
  5. SUGAMMADEX SODIUM [Suspect]
     Indication: NEUROMUSCULAR BLOCKADE REVERSAL
     Dosage: UNK UNK, Once
     Route: 042
     Dates: start: 20120705, end: 20120705
  6. NEOSTIGMINE [Suspect]
     Dosage: UNK ml, Once
     Route: 042
     Dates: start: 20120705
  7. BLINDED PLACEBO [Suspect]
     Dosage: UNK ml, Once
     Route: 042
     Dates: start: 20120705
  8. BLINDED POST TRIAL THERAPY [Suspect]
     Dosage: UNK ml, Once
     Route: 042
     Dates: start: 20120705
  9. BLINDED PRE TRIAL THERAPY [Suspect]
     Dosage: UNK ml, Once
     Route: 042
     Dates: start: 20120705
  10. SUGAMMADEX SODIUM [Suspect]
     Dosage: UNK ml, Once
     Route: 042
     Dates: start: 20120705
  11. CIPROXIN [Concomitant]
     Dosage: 500 mg, qd
     Route: 048
     Dates: start: 20120627
  12. DAFALGAN [Concomitant]
     Dosage: 1 g, prn
     Route: 048
     Dates: start: 2012
  13. VOLTAREN RETARD [Concomitant]
     Dosage: 75 mg, qd
     Route: 048
     Dates: start: 2012
  14. FRAXIPARIN [Concomitant]
     Indication: THROMBOSIS PROPHYLAXIS
     Dosage: 3800 units, qd
     Route: 058
     Dates: start: 20120704, end: 20120708
  15. FRAXIPARIN [Concomitant]
     Dosage: 5800 IU, qd
     Route: 058
     Dates: start: 20120709
  16. MOBIC [Concomitant]
     Indication: PROPHYLAXIS
     Dosage: 15 mg, qd
     Route: 048
     Dates: start: 20120701
  17. SUFENTA [Concomitant]
     Indication: INDUCTION OF ANAESTHESIA
     Dosage: 10 Microgram, Once
     Route: 042
     Dates: start: 20120705, end: 20120705
  18. SUFENTA [Concomitant]
     Dosage: 5 Microgram, Once
     Route: 042
     Dates: start: 20120705, end: 20120705
  19. SUFENTA [Concomitant]
     Dosage: 5 Microgram, Once
     Route: 042
     Dates: start: 20120705, end: 20120705
  20. PROPOFOL [Concomitant]
     Indication: INDUCTION OF ANAESTHESIA
     Dosage: 150 mg, Once
     Route: 042
     Dates: start: 20120705, end: 20120705
  21. PROPOFOL [Concomitant]
     Dosage: 7 ml, Once
     Route: 042
     Dates: start: 20120705, end: 20120705
  22. TARADYL [Concomitant]
     Indication: INDUCTION OF ANAESTHESIA
     Dosage: 30 mg, Once
     Route: 042
     Dates: start: 20120705, end: 20120705
  23. CEFACIDAL [Concomitant]
     Indication: INFECTION PROPHYLAXIS
     Dosage: 1 g, q6h
     Route: 042
     Dates: start: 20120705
  24. EXACYL [Concomitant]
     Indication: HAEMORRHAGE PROPHYLAXIS
     Dosage: 2 g, Once
     Route: 042
     Dates: start: 20120705, end: 20120705
  25. SEVOFLURANE [Concomitant]
     Indication: INDUCTION OF ANAESTHESIA
     Dosage: 4 %, Once
     Route: 055
     Dates: start: 20120705, end: 20120705
  26. SEVOFLURANE [Concomitant]
     Dosage: 2.4 %, Once
     Route: 055
     Dates: start: 20120705, end: 20120705
  27. EPHEDRINE [Concomitant]
     Indication: ADVERSE EVENT
     Dosage: 1 ml, Once
     Route: 042
     Dates: start: 20120705, end: 20120705
  28. ACETAMINOPHEN [Concomitant]
     Indication: INDUCTION OF ANAESTHESIA
     Dosage: 1 g, q6h
     Route: 042
     Dates: start: 20120705, end: 20120707
  29. MORPHINE [Concomitant]
     Indication: INDUCTION OF ANAESTHESIA
     Dosage: 5 mg, qh
     Route: 042
     Dates: start: 20120705
  30. MORPHINE [Concomitant]
     Dosage: 7 mg, Once
     Route: 042
     Dates: start: 20120705, end: 20120705
  31. PHENYLEPHRINE [Concomitant]
     Indication: ADVERSE EVENT
     Dosage: 1 ml, Once
     Route: 042
     Dates: start: 20120705, end: 20120705
  32. DROPERIDOL [Concomitant]
     Indication: PROPHYLAXIS OF NAUSEA AND VOMITING
     Dosage: 250 Microgram, qh
     Route: 042
     Dates: start: 20120705
  33. ZANTAC [Concomitant]
     Indication: PROPHYLAXIS
     Dosage: 50 mg, tid, intravenous blous
     Route: 042
     Dates: start: 20120706, end: 20120707
  34. ZANTAC [Concomitant]
     Dosage: 150 mg, qd
     Route: 048
     Dates: start: 20120709
  35. OMEPRAZOLE [Concomitant]
     Dosage: 20 mg, qd
     Route: 048
     Dates: start: 2001

REACTIONS (1)
  - Coagulopathy [Recovered/Resolved]
